FAERS Safety Report 5342189-6 (Version None)
Quarter: 2007Q2

REPORT INFORMATION
  Report Type: 
  Country: None (occurrence: None)
  Receive Date: 20070601
  Receipt Date: 20070531
  Transmission Date: 20071010
  Serious: Yes (Hospitalization)
  Sender: FDA-Public Use
  Company Number: B0473212A

PATIENT
  Age: 55 Year
  Sex: Female

DRUGS (1)
  1. CLAMOXYL [Suspect]
     Dosage: 1G SINGLE DOSE
     Route: 048
     Dates: start: 20070504, end: 20070504

REACTIONS (9)
  - ANAPHYLACTIC SHOCK [None]
  - BLOOD PRESSURE DECREASED [None]
  - FALL [None]
  - GENERALISED ERYTHEMA [None]
  - HEAD INJURY [None]
  - MALAISE [None]
  - PARAESTHESIA [None]
  - TREMOR [None]
  - VENTRICULAR EXTRASYSTOLES [None]
